FAERS Safety Report 9633929 (Version 2)
Quarter: 2013Q4

REPORT INFORMATION
  Report Type: Spontaneous
  Country: FR (occurrence: FR)
  Receive Date: 20131021
  Receipt Date: 20131021
  Transmission Date: 20140711
  Serious: Yes (Hospitalization)
  Sender: FDA-Public Use
  Company Number: FR-ROCHE-1217095

PATIENT
  Age: 36 Year
  Sex: Female

DRUGS (5)
  1. ROACTEMRA [Suspect]
     Indication: RHEUMATOID ARTHRITIS
     Dosage: AT 13 TH INFUSION : 760 MG
     Route: 041
     Dates: start: 201105, end: 20120410
  2. CELEBREX [Concomitant]
  3. INEXIUM [Concomitant]
  4. AERIUS [Concomitant]
  5. FORADIL [Concomitant]

REACTIONS (2)
  - H1N1 influenza [Recovered/Resolved]
  - Asthmatic crisis [Recovered/Resolved]
